FAERS Safety Report 7656133-X (Version None)
Quarter: 2011Q3

REPORT INFORMATION
  Report Type: 
  Country: None (occurrence: None)
  Receive Date: 20110804
  Receipt Date: 20110729
  Transmission Date: 20111222
  Serious: Yes (Hospitalization)
  Sender: FDA-Public Use
  Company Number: US-B.I. PHARMACEUTICALS,INC./RIDGEFIELD-2011-BP-18775BP

PATIENT
  Age: 42 Year
  Sex: Female

DRUGS (16)
  1. PROAIR HFA [Concomitant]
     Indication: ASTHMA
     Route: 055
  2. FLONASE [Concomitant]
     Indication: SEASONAL ALLERGY
     Route: 055
  3. INDOMETHACIN [Concomitant]
     Dosage: 50 MG
     Route: 048
  4. SINGULAIR [Concomitant]
     Indication: ASTHMA
     Dosage: 10 MG
     Route: 048
  5. DHU [Concomitant]
     Indication: MIGRAINE
     Dosage: 5 MG
     Route: 030
  6. SPIRIVA [Suspect]
     Indication: ASTHMA
     Dosage: 18 MCG
     Route: 055
     Dates: start: 20110501
  7. TOPAMAX [Concomitant]
     Indication: MIGRAINE
     Dosage: 400 MG
     Route: 048
  8. ZOLPIDEM [Concomitant]
     Dosage: 10 MG
     Route: 048
  9. NEXIUM [Concomitant]
     Indication: GASTROOESOPHAGEAL REFLUX DISEASE
     Dosage: 40 MG
     Route: 048
  10. XOLAIR [Concomitant]
     Indication: ASTHMA
  11. XOPENEX [Concomitant]
     Indication: ASTHMA
     Route: 055
  12. ADVAIR DISKUS 100/50 [Concomitant]
     Indication: ASTHMA
     Route: 055
  13. LEXAPRO [Concomitant]
     Indication: DEPRESSION
     Dosage: 30 MG
     Route: 048
  14. ALLEGRA [Concomitant]
     Indication: SEASONAL ALLERGY
     Dosage: 180 MG
     Route: 048
  15. GABAPENTIN [Concomitant]
     Indication: MIGRAINE
     Dosage: 300 MG
     Route: 048
  16. TIZANIDINE HCL [Concomitant]

REACTIONS (3)
  - PRODUCTIVE COUGH [None]
  - SPUTUM DISCOLOURED [None]
  - DYSPNOEA [None]
